FAERS Safety Report 13252427 (Version 1)
Quarter: 2017Q1

REPORT INFORMATION
  Report Type: Spontaneous
  Country: US (occurrence: US)
  Receive Date: 20170220
  Receipt Date: 20170220
  Transmission Date: 20170428
  Serious: No
  Sender: FDA-Public Use
  Company Number: US-ELI_LILLY_AND_COMPANY-US201702001352

PATIENT
  Sex: Male

DRUGS (2)
  1. SOMATROPIN [Suspect]
     Active Substance: SOMATROPIN
     Indication: BLOOD TEST ABNORMAL
     Dosage: 0.6 MG, UNK
     Route: 065
  2. SOMATROPIN [Suspect]
     Active Substance: SOMATROPIN

REACTIONS (1)
  - Underdose [Unknown]

NARRATIVE: CASE EVENT DATE: 20170203
